FAERS Safety Report 26187012 (Version 2)
Quarter: 2025Q4

REPORT INFORMATION
  Report Type: Spontaneous
  Country: None (occurrence: MX)
  Receive Date: 20251222
  Receipt Date: 20251229
  Transmission Date: 20260117
  Serious: Yes (Death)
  Sender: ULTRAGENYX PHARMACEUTICAL
  Company Number: MX-ULTRAGENYX PHARMACEUTICAL INC.-MX-UGX-25-02493

PATIENT
  Age: 1 Year
  Sex: Female
  Weight: 5 kg

DRUGS (2)
  1. MEPSEVII [Suspect]
     Active Substance: VESTRONIDASE ALFA-VJBK
     Indication: Product used for unknown indication
     Dosage: UNK UNK, UNK
  2. MEPSEVII [Suspect]
     Active Substance: VESTRONIDASE ALFA-VJBK
     Dosage: UNK, UNK
     Dates: start: 20251210, end: 20251210

REACTIONS (1)
  - Death [Fatal]

NARRATIVE: CASE EVENT DATE: 20251216
